FAERS Safety Report 22133546 (Version 1)
Quarter: 2023Q1

REPORT INFORMATION
  Report Type: Report from Study
  Country: KR (occurrence: KR)
  Receive Date: 20230324
  Receipt Date: 20230324
  Transmission Date: 20230417
  Serious: Yes (Hospitalization, Other)
  Sender: FDA-Public Use
  Company Number: KR-CELLTRION INC.-2023KR005965

PATIENT

DRUGS (17)
  1. INFLIXIMAB [Suspect]
     Active Substance: INFLIXIMAB
     Indication: Crohn^s disease
     Dosage: UNK
     Route: 058
     Dates: start: 20211223, end: 20220106
  2. METRONIDAZOLE [Concomitant]
     Active Substance: METRONIDAZOLE
     Indication: Infection
     Dosage: 500 MILLIGRAM, TID
     Route: 042
     Dates: start: 20220118, end: 20220124
  3. METRONIDAZOLE [Concomitant]
     Active Substance: METRONIDAZOLE
     Dosage: 500 MILLIGRAM, TID
     Route: 042
     Dates: start: 20220125, end: 20220203
  4. CIPROFLOXACIN [Concomitant]
     Active Substance: CIPROFLOXACIN
     Indication: Infection
     Dosage: 200 MILLIGRAM, BID
     Route: 042
     Dates: start: 20220118, end: 20220121
  5. CEFTRIAXONE [Concomitant]
     Active Substance: CEFTRIAXONE
     Indication: Infection
     Dosage: 2 GRAM, QD
     Route: 042
     Dates: start: 20220121, end: 20220124
  6. CEFTRIAXONE [Concomitant]
     Active Substance: CEFTRIAXONE
     Dosage: 2 GRAM, QD
     Route: 042
     Dates: start: 20220125, end: 20220126
  7. MESALAMINE [Concomitant]
     Active Substance: MESALAMINE
     Indication: Crohn^s disease
     Dosage: 1 GRAM, BID
     Route: 048
     Dates: start: 20220121
  8. MESALAMINE [Concomitant]
     Active Substance: MESALAMINE
     Dosage: 1 GRAM, BID
     Route: 048
     Dates: start: 20220125
  9. PROAMIN [Concomitant]
     Indication: Hypophagia
     Dosage: 1 BOTTLE, QD
     Route: 042
     Dates: start: 20220119, end: 20220123
  10. PREDNISOLONE [Concomitant]
     Active Substance: PREDNISOLONE
     Indication: Infection
     Dosage: 5 MILLIGRAM, QD
     Route: 048
     Dates: start: 20220123
  11. PREDNISOLONE [Concomitant]
     Active Substance: PREDNISOLONE
     Indication: Prophylaxis
     Dosage: 5 MILLIGRAM, QD
     Route: 048
     Dates: start: 20220209
  12. PREDNISOLONE [Concomitant]
     Active Substance: PREDNISOLONE
     Dosage: 5 MILLIGRAM, QD
     Route: 048
     Dates: start: 20220223, end: 20220228
  13. PIPERACILLIN SODIUM\TAZOBACTAM SODIUM [Concomitant]
     Active Substance: PIPERACILLIN SODIUM\TAZOBACTAM SODIUM
     Indication: Infection
     Dosage: 4.5 GRAM, TID
     Route: 042
     Dates: start: 20220125, end: 20220209
  14. ALBUMIN HUMAN [Concomitant]
     Active Substance: ALBUMIN HUMAN
     Indication: Blood albumin decreased
     Dosage: 1 BOTTLE, QD
     Route: 042
     Dates: start: 20220127, end: 20220129
  15. YAMATETAN [Concomitant]
     Indication: Prophylaxis
     Dosage: 1 GRAM, QD
     Route: 042
     Dates: start: 20220227, end: 20220227
  16. PAMISOL [ACETYLCYSTEINE;ALANINE;ARGININE;GLYCINE;HISTIDINE;ISOLEUCINE; [Concomitant]
     Dosage: 500 MILLIGRAM, QD
     Route: 042
     Dates: start: 20220125, end: 20220126
  17. NEXIUM I.V. [Concomitant]
     Active Substance: ESOMEPRAZOLE SODIUM
     Indication: Prophylaxis
     Dosage: 20 MILLIGRAM, QD
     Route: 048
     Dates: start: 20220221, end: 20220309

REACTIONS (4)
  - Small intestinal perforation [Recovering/Resolving]
  - Hyponatraemia [Recovering/Resolving]
  - Acute kidney injury [Recovering/Resolving]
  - Abdominal abscess [Recovering/Resolving]

NARRATIVE: CASE EVENT DATE: 20220117
